FAERS Safety Report 9679915 (Version 2)
Quarter: 2013Q4

REPORT INFORMATION
  Report Type: Report from Study
  Country: CA (occurrence: CA)
  Receive Date: 20131110
  Receipt Date: 20131124
  Transmission Date: 20140711
  Serious: Yes (Other)
  Sender: FDA-Public Use
  Company Number: CA-ROCHE-1300497

PATIENT
  Sex: Male
  Weight: 62.6 kg

DRUGS (2)
  1. XELODA [Suspect]
     Indication: GASTROOESOPHAGEAL CANCER
     Route: 048
     Dates: start: 20120918, end: 201302
  2. METOCLOP [Concomitant]

REACTIONS (2)
  - Disease progression [Not Recovered/Not Resolved]
  - Pleural effusion [Unknown]
